FAERS Safety Report 20239564 (Version 1)
Quarter: 2021Q4

REPORT INFORMATION
  Report Type: Other
  Country: DE (occurrence: None)
  Receive Date: 20211228
  Receipt Date: 20211228
  Transmission Date: 20220303
  Serious: Yes (Other)
  Sender: FDA-Public Use
  Company Number: DE-ROCHE-2951601

PATIENT
  Age: 32 Year
  Sex: Female
  Weight: 56.8 kg

DRUGS (3)
  1. OCRELIZUMAB [Suspect]
     Active Substance: OCRELIZUMAB
     Indication: Multiple sclerosis
     Route: 042
     Dates: start: 20200604
  2. MAGNESIUM [Concomitant]
     Active Substance: MAGNESIUM
     Dates: start: 20201018, end: 20210415
  3. CLOTRIMAZOLE [Concomitant]
     Active Substance: CLOTRIMAZOLE
     Dates: start: 20210203, end: 20210205

REACTIONS (4)
  - Vulvovaginal mycotic infection [Unknown]
  - Restless legs syndrome [Unknown]
  - Anaemia [Unknown]
  - Maternal exposure during pregnancy [Unknown]
